FAERS Safety Report 7078614-2 (Version None)
Quarter: 2010Q4

REPORT INFORMATION
  Report Type: 
  Country: None (occurrence: None)
  Receive Date: 20101102
  Receipt Date: 20101021
  Transmission Date: 20110411
  Serious: Yes (Disabling, Other)
  Sender: FDA-Public Use
  Company Number: US-ELI_LILLY_AND_COMPANY-US201010005533

PATIENT
  Sex: Female

DRUGS (1)
  1. HUMALOG [Suspect]
     Indication: DIABETES MELLITUS

REACTIONS (5)
  - BLOOD GLUCOSE INCREASED [None]
  - DIABETIC COMPLICATION [None]
  - DIALYSIS [None]
  - GAIT DISTURBANCE [None]
  - VISUAL IMPAIRMENT [None]
